FAERS Safety Report 23572980 (Version 1)
Quarter: 2024Q1

REPORT INFORMATION
  Report Type: Spontaneous
  Country: PL (occurrence: PL)
  Receive Date: 20240227
  Receipt Date: 20240227
  Transmission Date: 20240409
  Serious: Yes (Hospitalization, Other)
  Sender: FDA-Public Use
  Company Number: PL-BRISTOL-MYERS SQUIBB COMPANY-2024-029548

PATIENT
  Age: 62 Year
  Sex: Male

DRUGS (6)
  1. NIVOLUMAB [Suspect]
     Active Substance: NIVOLUMAB
     Indication: Renal cancer
     Dosage: DOSE : NIVO 3MG/KG (381 MG),   FREQ : D1?CYCLE 1
     Route: 042
     Dates: start: 20230516
  2. NIVOLUMAB [Suspect]
     Active Substance: NIVOLUMAB
     Dosage: CYCLE 2
     Route: 042
     Dates: start: 20230606
  3. NIVOLUMAB [Suspect]
     Active Substance: NIVOLUMAB
     Dosage: (1 MONOTHERAPY) NIVOLUMAB 240 ML IV
     Route: 042
     Dates: start: 20230726
  4. NIVOLUMAB [Suspect]
     Active Substance: NIVOLUMAB
     Dosage: (13 MONOTHERAPY) NIVOLUMAB 240 ML IV
     Route: 042
     Dates: start: 20240130
  5. IPILIMUMAB [Suspect]
     Active Substance: IPILIMUMAB
     Indication: Renal cancer
     Dosage: DOSE :IPI 1MG/KG (127 MG);     FREQ : D1?CYCLE 1
     Route: 042
     Dates: start: 20230516
  6. IPILIMUMAB [Suspect]
     Active Substance: IPILIMUMAB
     Dosage: CYCLE 2
     Route: 042
     Dates: start: 20230606

REACTIONS (2)
  - Immune-mediated lung disease [Recovered/Resolved]
  - Pulmonary fibrosis [Recovered/Resolved]

NARRATIVE: CASE EVENT DATE: 20230610
